FAERS Safety Report 8239823-X (Version None)
Quarter: 2012Q1

REPORT INFORMATION
  Report Type: 
  Country: None (occurrence: None)
  Receive Date: 20120328
  Receipt Date: 20120323
  Transmission Date: 20120608
  Serious: Yes (Death)
  Sender: FDA-Public Use
  Company Number: DE-ASTELLAS-2012EU001968

PATIENT
  Sex: Female

DRUGS (7)
  1. MICAFUNGIN INJECTION [Suspect]
     Indication: ANTIFUNGAL PROPHYLAXIS
     Dosage: 50 MG, UNKNOWN/D
     Route: 042
     Dates: start: 20111027, end: 20111113
  2. FUROSEMIDE [Concomitant]
     Dosage: UNK
     Route: 065
     Dates: start: 20111106, end: 20111113
  3. HYDROMORPHONE HCL [Concomitant]
     Dosage: UNK
     Dates: start: 20111013, end: 20111110
  4. MEPERIDINE HCL [Concomitant]
     Dosage: UNK
     Route: 065
     Dates: start: 20111026, end: 20111026
  5. ALIZAPRIDE [Concomitant]
     Dosage: UNK
     Route: 065
     Dates: start: 20111025, end: 20111104
  6. ALLOPURINOL [Concomitant]
     Dosage: UNK
     Route: 065
     Dates: start: 20111025, end: 20111031
  7. MEROPENEM [Concomitant]
     Dosage: UNK
     Route: 065
     Dates: start: 20111009

REACTIONS (1)
  - PNEUMONITIS [None]
